FAERS Safety Report 4451112-8 (Version None)
Quarter: 2004Q3

REPORT INFORMATION
  Report Type: 
  Country: None (occurrence: None)
  Receive Date: 20040916
  Receipt Date: 20040906
  Transmission Date: 20050211
  Serious: Yes (Other)
  Sender: FDA-Public Use
  Company Number: DE-JNJFOC-20040902450

PATIENT
  Sex: Female

DRUGS (1)
  1. SEMPERA [Suspect]
     Indication: ONYCHOMYCOSIS
     Route: 049

REACTIONS (1)
  - PANCREATITIS NECROTISING [None]
